FAERS Safety Report 18360516 (Version 7)
Quarter: 2022Q3

REPORT INFORMATION
  Report Type: Spontaneous
  Country: US (occurrence: US)
  Receive Date: 20201008
  Receipt Date: 20220725
  Transmission Date: 20221027
  Serious: Yes (Other)
  Sender: FDA-Public Use
  Company Number: US-PFIZER INC-2020388372

PATIENT
  Age: 61 Year
  Sex: Female

DRUGS (1)
  1. XELJANZ XR [Suspect]
     Active Substance: TOFACITINIB CITRATE
     Indication: Rheumatoid arthritis
     Dosage: 11 MG

REACTIONS (8)
  - Diverticulitis [Unknown]
  - Pain [Unknown]
  - Insomnia [Unknown]
  - Seasonal allergy [Unknown]
  - Hypertension [Unknown]
  - Abdominal discomfort [Unknown]
  - Bronchitis [Unknown]
  - Memory impairment [Unknown]
